FAERS Safety Report 18113112 (Version 3)
Quarter: 2020Q4

REPORT INFORMATION
  Report Type: Spontaneous
  Country: US (occurrence: US)
  Receive Date: 20200805
  Receipt Date: 20201001
  Transmission Date: 20210113
  Serious: No
  Sender: FDA-Public Use
  Company Number: US-SA-2020SA199791

PATIENT

DRUGS (1)
  1. LANTUS SOLOSTAR [Suspect]
     Active Substance: INSULIN GLARGINE
     Indication: TYPE 2 DIABETES MELLITUS
     Dosage: 24 IU, QD
     Route: 065
     Dates: start: 202007

REACTIONS (4)
  - Incorrect dose administered by device [Unknown]
  - Blood glucose increased [Unknown]
  - Needle issue [Unknown]
  - Device operational issue [Unknown]

NARRATIVE: CASE EVENT DATE: 202007
